FAERS Safety Report 15803684 (Version 1)
Quarter: 2019Q1

REPORT INFORMATION
  Report Type: Report from Study
  Country: US (occurrence: US)
  Receive Date: 20190109
  Receipt Date: 20190109
  Transmission Date: 20190417
  Serious: Yes (Hospitalization)
  Sender: FDA-Public Use
  Company Number: US-ACTELION-A-US2019-184680

PATIENT
  Age: 59 Year
  Sex: Female

DRUGS (19)
  1. CARTIA XT [Concomitant]
     Active Substance: DILTIAZEM HYDROCHLORIDE
  2. FOLIC ACID. [Concomitant]
     Active Substance: FOLIC ACID
  3. SPIRONOLACTONE. [Concomitant]
     Active Substance: SPIRONOLACTONE
  4. SUCRALFATE. [Concomitant]
     Active Substance: SUCRALFATE
  5. FUROSEMIDE. [Concomitant]
     Active Substance: FUROSEMIDE
  6. NYSTOP [Concomitant]
     Active Substance: NYSTATIN
  7. POTASSIUM CHLORIDE. [Concomitant]
     Active Substance: POTASSIUM CHLORIDE
  8. WARFARIN SODIUM. [Concomitant]
     Active Substance: WARFARIN SODIUM
  9. SILDENAFIL. [Concomitant]
     Active Substance: SILDENAFIL
  10. OMEPRAZOLE. [Concomitant]
     Active Substance: OMEPRAZOLE
  11. VENTOLIN HFA [Concomitant]
     Active Substance: ALBUTEROL SULFATE
  12. OPSUMIT [Suspect]
     Active Substance: MACITENTAN
     Indication: PULMONARY HYPERTENSION
     Dosage: 10 MG, UNK
     Route: 048
  13. TOPIRAMATE. [Concomitant]
     Active Substance: TOPIRAMATE
  14. BENZONATATE. [Concomitant]
     Active Substance: BENZONATATE
  15. PREDNISONE. [Concomitant]
     Active Substance: PREDNISONE
  16. CLONAZEPAM. [Concomitant]
     Active Substance: CLONAZEPAM
  17. DILTIAZEM HCL [Concomitant]
     Active Substance: DILTIAZEM HYDROCHLORIDE
  18. DIOCTYL SODIUM SULFOSUCCINATE [Concomitant]
  19. AMOXICILLIN. [Concomitant]
     Active Substance: AMOXICILLIN

REACTIONS (2)
  - Product dose omission [Unknown]
  - Surgery [Unknown]

NARRATIVE: CASE EVENT DATE: 201812
